FAERS Safety Report 13926159 (Version 2)
Quarter: 2017Q4

REPORT INFORMATION
  Report Type: Spontaneous
  Country: AM (occurrence: AM)
  Receive Date: 20170831
  Receipt Date: 20171011
  Transmission Date: 20180320
  Serious: Yes (Other)
  Sender: FDA-Public Use
  Company Number: AM-JNJFOC-20170821320

PATIENT
  Age: 31 Year
  Sex: Female
  Weight: 54 kg

DRUGS (9)
  1. BEDAQUILINE [Suspect]
     Active Substance: BEDAQUILINE
     Indication: TUBERCULOSIS
     Dosage: PARTNER DOSING
     Route: 048
     Dates: start: 20160804
  2. CYCLOSERINE. [Suspect]
     Active Substance: CYCLOSERINE
     Indication: TUBERCULOSIS
     Route: 065
     Dates: start: 20160804, end: 20161001
  3. CLOFAZIMINE [Suspect]
     Active Substance: CLOFAZIMINE
     Indication: TUBERCULOSIS
     Dosage: PARTNER DOSING
     Route: 065
     Dates: start: 20160804
  4. AMOXICILLIN/CLAVULANIC ACID [Suspect]
     Active Substance: AMOXICILLIN\CLAVULANIC ACID
     Indication: TUBERCULOSIS
     Dosage: PARTNER DOSING
     Route: 065
     Dates: start: 20160804, end: 20170612
  5. LEVOFLOXACIN. [Suspect]
     Active Substance: LEVOFLOXACIN
     Indication: TUBERCULOSIS
     Dosage: PARTNER DOSING
     Route: 065
     Dates: start: 20160804
  6. CAPREOMYCIN [Suspect]
     Active Substance: CAPREOMYCIN
     Indication: TUBERCULOSIS
     Route: 065
     Dates: start: 20160804, end: 20160916
  7. LINEZOLID. [Suspect]
     Active Substance: LINEZOLID
     Indication: TUBERCULOSIS
     Dosage: PARTNER DOSING
     Route: 065
     Dates: start: 20160804
  8. PYRIDOXINE [Concomitant]
     Active Substance: PYRIDOXINE
     Route: 065
  9. IMIPENEM [Suspect]
     Active Substance: IMIPENEM
     Indication: TUBERCULOSIS
     Dosage: PARTNER DOSING
     Route: 065
     Dates: start: 20160804, end: 20170601

REACTIONS (2)
  - Paternal exposure during pregnancy [Recovered/Resolved]
  - Abortion spontaneous [Unknown]

NARRATIVE: CASE EVENT DATE: 20170515
